FAERS Safety Report 5071575-7 (Version None)
Quarter: 2006Q3

REPORT INFORMATION
  Report Type: 
  Country: None (occurrence: None)
  Receive Date: 20060804
  Receipt Date: 20051025
  Transmission Date: 20061208
  Serious: Yes (Death, Hospitalization)
  Sender: FDA-Public Use
  Company Number: PHHO2005CN16731

PATIENT
  Age: 51 Year
  Sex: Male
  Weight: 53 kg

DRUGS (3)
  1. ERL080A VS MMF [Suspect]
     Indication: RENAL TRANSPLANT
     Dosage: CODE NOT BROKEN
     Route: 048
     Dates: start: 20050624, end: 20051017
  2. NEORAL [Suspect]
     Indication: RENAL TRANSPLANT
     Dosage: 210 MG / DAILY
     Dates: start: 20050626, end: 20051017
  3. PREDNISONE TAB [Suspect]
     Indication: RENAL TRANSPLANT
     Dosage: 15 MG /DAILY
     Dates: start: 20050826, end: 20051017

REACTIONS (3)
  - LUNG DISORDER [None]
  - PNEUMONIA [None]
  - PYREXIA [None]
